FAERS Safety Report 20727450 (Version 1)
Quarter: 2022Q2

REPORT INFORMATION
  Report Type: Spontaneous
  Country: US (occurrence: None)
  Receive Date: 20220419
  Receipt Date: 20220419
  Transmission Date: 20220720
  Serious: No
  Sender: FDA-Public Use
  Company Number: US-ROCHE-2814045

PATIENT
  Sex: Male
  Weight: 68.100 kg

DRUGS (4)
  1. AVASTIN [Suspect]
     Active Substance: BEVACIZUMAB
     Indication: Iron deficiency anaemia
     Route: 042
     Dates: start: 20210223
  2. AVASTIN [Suspect]
     Active Substance: BEVACIZUMAB
     Indication: Haemorrhage
  3. ACETAMINOPHEN [Concomitant]
     Active Substance: ACETAMINOPHEN
     Dosage: ER
     Route: 048
     Dates: start: 20210216
  4. GABAPENTIN [Concomitant]
     Active Substance: GABAPENTIN
     Route: 048
     Dates: start: 20210216

REACTIONS (2)
  - Diarrhoea [Unknown]
  - Off label use [Unknown]
